FAERS Safety Report 16789632 (Version 1)
Quarter: 2019Q3

REPORT INFORMATION
  Report Type: Spontaneous
  Country: JP (occurrence: JP)
  Receive Date: 20190910
  Receipt Date: 20190910
  Transmission Date: 20191005
  Serious: Yes (Hospitalization, Other)
  Sender: FDA-Public Use
  Company Number: JP-ACCORD-154422

PATIENT
  Age: 32 Year
  Sex: Female

DRUGS (2)
  1. TACROLIMUS. [Suspect]
     Active Substance: TACROLIMUS
     Indication: IMMUNOSUPPRESSION
     Dosage: ADMINISTRATION USING A NASOGASTRIC?TUBE ON POSTOPERATIVE DAY (POD) 1
  2. MYCOPHENOLIC ACID. [Suspect]
     Active Substance: MYCOPHENOLIC ACID
     Indication: IMMUNOSUPPRESSION
     Dosage: ADMINISTRATION USING A NASOGASTRIC?TUBE ON POSTOPERATIVE DAY (POD) 1

REACTIONS (2)
  - Pneumonia aspiration [Recovered/Resolved]
  - Septic shock [Recovered/Resolved]
